FAERS Safety Report 24213926 (Version 1)
Quarter: 2024Q3

REPORT INFORMATION
  Report Type: Spontaneous
  Country: US (occurrence: None)
  Receive Date: 20240815
  Receipt Date: 20240815
  Transmission Date: 20241017
  Serious: Yes (Death)
  Sender: Public
  Company Number: None

PATIENT
  Age: 89 Year
  Sex: Female

DRUGS (5)
  1. PROLIA [Suspect]
     Active Substance: DENOSUMAB
  2. CARVEDILOL [Suspect]
     Active Substance: CARVEDILOL
  3. AMLODIPINE BESYLATE [Suspect]
     Active Substance: AMLODIPINE BESYLATE
  4. CALCIUM [Suspect]
     Active Substance: CALCIUM
  5. RAMIPRIL [Suspect]
     Active Substance: RAMIPRIL

REACTIONS (2)
  - Osteoarthritis [None]
  - Hypertension [None]

NARRATIVE: CASE EVENT DATE: 20240704
